FAERS Safety Report 7683398-0 (Version None)
Quarter: 2011Q3

REPORT INFORMATION
  Report Type: 
  Country: None (occurrence: None)
  Receive Date: 20110815
  Receipt Date: 20110805
  Transmission Date: 20111222
  Serious: Yes (Hospitalization, Other)
  Sender: FDA-Public Use
  Company Number: US-GENZYME-CAMP-1001807

PATIENT
  Age: 55 Year
  Sex: Female

DRUGS (1)
  1. CAMPATH [Suspect]
     Indication: ADULT T-CELL LYMPHOMA/LEUKAEMIA
     Dosage: 30 MG, TIW
     Route: 042

REACTIONS (2)
  - VITREOUS DISORDER [None]
  - STRONGYLOIDIASIS [None]
